FAERS Safety Report 9096357 (Version 1)
Quarter: 2013Q1

REPORT INFORMATION
  Report Type: Spontaneous
  Country: FR (occurrence: FR)
  Receive Date: 20130207
  Receipt Date: 20130207
  Transmission Date: 20140127
  Serious: Yes (Death, Hospitalization)
  Sender: FDA-Public Use
  Company Number: FR-B.I. PHARMACEUTICALS,INC./RIDGEFIELD-2013-FF-00320FF

PATIENT
  Age: 80 Year
  Sex: Male

DRUGS (8)
  1. PRADAXA [Suspect]
     Indication: THROMBOSIS PROPHYLAXIS
     Dosage: 220 MG
     Route: 048
     Dates: start: 20121029, end: 20121109
  2. TOPALGIC [Suspect]
     Indication: PROCEDURAL PAIN
     Dosage: 50 MG
     Route: 048
     Dates: start: 20121029, end: 20121109
  3. KARDEGIC [Suspect]
     Indication: PROPHYLAXIS
     Dosage: 75 MG
     Route: 048
  4. AMIODARONE [Concomitant]
     Indication: ATRIAL FIBRILLATION
     Dosage: 1000 MG
     Route: 048
  5. METFORMINE [Concomitant]
     Indication: TYPE 2 DIABETES MELLITUS
     Dosage: 2000 MG
     Route: 048
  6. EXFORGE [Concomitant]
     Indication: HYPERTENSION
     Dosage: 5 MG/160 MG
     Route: 048
  7. ALLOPURINOL [Concomitant]
     Dosage: 100 MG
     Route: 048
  8. LASILIX [Concomitant]
     Dosage: 40 MG
     Route: 048

REACTIONS (1)
  - Cardio-respiratory arrest [Fatal]
